FAERS Safety Report 7229379-2 (Version None)
Quarter: 2011Q1

REPORT INFORMATION
  Report Type: 
  Country: None (occurrence: None)
  Receive Date: 20110117
  Receipt Date: 20110110
  Transmission Date: 20110831
  Serious: Yes (Other)
  Sender: FDA-Public Use
  Company Number: A0904947A

PATIENT
  Age: 68 Year
  Sex: Female

DRUGS (14)
  1. ADVAIR [Suspect]
     Indication: ASTHMA
     Route: 055
  2. BUSPIRONE [Concomitant]
  3. COMBIVENT [Concomitant]
  4. PRILOSEC [Concomitant]
  5. FERROUS SULFATE [Concomitant]
  6. CLARITIN-D [Concomitant]
  7. FUROSEMIDE [Concomitant]
  8. SINGULAIR [Concomitant]
  9. OXYCODONE HCL AND ACETAMINOPHEN [Concomitant]
  10. AZELASTINE HCL [Concomitant]
  11. DILTIAZEM [Concomitant]
  12. POTASSIUM [Concomitant]
  13. LISINOPRIL [Concomitant]
  14. PROBENECID [Concomitant]

REACTIONS (4)
  - WHEEZING [None]
  - DYSPNOEA [None]
  - ASTHMA [None]
  - PRODUCT QUALITY ISSUE [None]
